FAERS Safety Report 7716928-0 (Version None)
Quarter: 2011Q3

REPORT INFORMATION
  Report Type: 
  Country: None (occurrence: None)
  Receive Date: 20110829
  Receipt Date: 20110808
  Transmission Date: 20111222
  Serious: Yes (Death, Hospitalization)
  Sender: FDA-Public Use
  Company Number: CA-VALEANT-2010VX001822

PATIENT
  Age: 75 Year
  Sex: Female

DRUGS (10)
  1. MAXERAN [Concomitant]
     Route: 065
     Dates: start: 20100915, end: 20101112
  2. NABILONE [Suspect]
     Route: 065
     Dates: start: 20100913, end: 20100915
  3. DILAUDID [Concomitant]
     Route: 065
     Dates: start: 20100915, end: 20101119
  4. CRESTOR [Concomitant]
     Route: 065
  5. TYLENOL-500 [Concomitant]
     Route: 065
  6. SCOPOLAMINE [Concomitant]
     Route: 065
  7. IPILIMUMAB [Suspect]
     Indication: MALIGNANT MELANOMA
     Route: 042
     Dates: start: 20100914, end: 20100914
  8. METFORMIN HYDROCHLORIDE [Concomitant]
     Route: 065
  9. GRAVOL TAB [Concomitant]
     Route: 065
  10. DECADRON [Concomitant]
     Route: 065
     Dates: start: 20101108, end: 20101112

REACTIONS (13)
  - NEOPLASM PROGRESSION [None]
  - LETHARGY [None]
  - METASTASES TO CENTRAL NERVOUS SYSTEM [None]
  - HAEMORRHAGIC CEREBRAL INFARCTION [None]
  - OEDEMA PERIPHERAL [None]
  - VASOGENIC CEREBRAL OEDEMA [None]
  - CONFUSIONAL STATE [None]
  - COMA [None]
  - GENERAL PHYSICAL HEALTH DETERIORATION [None]
  - HYPOPHAGIA [None]
  - MALIGNANT MELANOMA [None]
  - PNEUMONIA [None]
  - CHEYNE-STOKES RESPIRATION [None]
